FAERS Safety Report 26134052 (Version 1)
Quarter: 2025Q4

REPORT INFORMATION
  Report Type: Spontaneous
  Country: EU (occurrence: EU)
  Receive Date: 20251209
  Receipt Date: 20251209
  Transmission Date: 20260119
  Serious: Yes (Life-Threatening, Hospitalization)
  Sender: RANBAXY
  Company Number: EU-MINISAL02-1055103

PATIENT
  Age: 80 Year
  Sex: Male
  Weight: 70 kg

DRUGS (1)
  1. METFORMIN [Suspect]
     Active Substance: METFORMIN HYDROCHLORIDE
     Dosage: UNK
     Route: 048

REACTIONS (4)
  - Diabetic ketoacidosis [Not Recovered/Not Resolved]
  - Vomiting [Not Recovered/Not Resolved]
  - Decreased appetite [Not Recovered/Not Resolved]
  - Anuria [Not Recovered/Not Resolved]

NARRATIVE: CASE EVENT DATE: 20250814
